FAERS Safety Report 18986095 (Version 2)
Quarter: 2021Q2

REPORT INFORMATION
  Report Type: Spontaneous
  Country: US (occurrence: US)
  Receive Date: 20210309
  Receipt Date: 20210616
  Transmission Date: 20210717
  Serious: Yes (Other)
  Sender: FDA-Public Use
  Company Number: US-GILEAD-2021-0519935

PATIENT
  Sex: Female
  Weight: 91.61 kg

DRUGS (36)
  1. MEDROXYPROGESTERONE [Concomitant]
     Active Substance: MEDROXYPROGESTERONE
  2. OMEGA?3 NOS [Concomitant]
     Active Substance: OMEGA-3 FATTY ACIDS
  3. ATORVASTATIN [Concomitant]
     Active Substance: ATORVASTATIN
  4. PREDNISOLONE. [Concomitant]
     Active Substance: PREDNISOLONE
  5. GENVOYA [Concomitant]
     Active Substance: COBICISTAT\ELVITEGRAVIR\EMTRICITABINE\TENOFOVIR ALAFENAMIDE FUMARATE
  6. BIKTARVY [Concomitant]
     Active Substance: BICTEGRAVIR SODIUM\EMTRICITABINE\TENOFOVIR ALAFENAMIDE FUMARATE
  7. PREZISTA [Concomitant]
     Active Substance: DARUNAVIR ETHANOLATE
  8. LORATADINE. [Concomitant]
     Active Substance: LORATADINE
  9. NORVIR [Concomitant]
     Active Substance: RITONAVIR
  10. PREVACID [Concomitant]
     Active Substance: LANSOPRAZOLE
  11. LISINOPRIL. [Concomitant]
     Active Substance: LISINOPRIL
  12. CARVEDILOL. [Concomitant]
     Active Substance: CARVEDILOL
  13. DUPIXENT [Concomitant]
     Active Substance: DUPILUMAB
  14. METOCLOPRAMIDE. [Concomitant]
     Active Substance: METOCLOPRAMIDE
  15. SPIRIVA [Concomitant]
     Active Substance: TIOTROPIUM BROMIDE MONOHYDRATE
  16. COMBIVIR [Concomitant]
     Active Substance: LAMIVUDINE\ZIDOVUDINE
  17. STRIBILD [Suspect]
     Active Substance: COBICISTAT\ELVITEGRAVIR\EMTRICITABINE\TENOFOVIR DISOPROXIL FUMARATE
     Dosage: UNK
     Route: 065
     Dates: start: 2012, end: 2018
  18. GEMFIBROZIL. [Concomitant]
     Active Substance: GEMFIBROZIL
  19. NITROSTAT [Concomitant]
     Active Substance: NITROGLYCERIN
  20. TRUVADA [Suspect]
     Active Substance: EMTRICITABINE\TENOFOVIR DISOPROXIL FUMARATE
     Dosage: UNK
     Route: 065
     Dates: start: 2004, end: 2012
  21. ALENDRONATE [Concomitant]
     Active Substance: ALENDRONATE SODIUM
  22. EZETIMIBE. [Concomitant]
     Active Substance: EZETIMIBE
  23. PRAVASTATIN. [Concomitant]
     Active Substance: PRAVASTATIN
  24. FAMOTIDINE. [Concomitant]
     Active Substance: FAMOTIDINE
  25. VIREAD [Suspect]
     Active Substance: TENOFOVIR DISOPROXIL FUMARATE
     Indication: HIV INFECTION
     Dosage: UNK
     Route: 048
     Dates: start: 2001
  26. TRUVADA [Suspect]
     Active Substance: EMTRICITABINE\TENOFOVIR DISOPROXIL FUMARATE
     Indication: HIV INFECTION
     Dosage: UNK
     Route: 048
     Dates: start: 2001
  27. STRIBILD [Suspect]
     Active Substance: COBICISTAT\ELVITEGRAVIR\EMTRICITABINE\TENOFOVIR DISOPROXIL FUMARATE
     Indication: HIV INFECTION
     Dosage: UNK
     Route: 048
     Dates: start: 2001
  28. VITAMIN D NOS [Concomitant]
     Active Substance: VITAMIN D NOS
  29. CALCIUM [Concomitant]
     Active Substance: CALCIUM
  30. LEXIVA [Concomitant]
     Active Substance: FOSAMPRENAVIR CALCIUM
  31. VIREAD [Suspect]
     Active Substance: TENOFOVIR DISOPROXIL FUMARATE
     Dosage: UNK
     Route: 065
     Dates: start: 2001, end: 2004
  32. BACLOFEN. [Concomitant]
     Active Substance: BACLOFEN
  33. HYDROCHLOROTHIAZIDE. [Concomitant]
     Active Substance: HYDROCHLOROTHIAZIDE
  34. OMEPRAZOLE. [Concomitant]
     Active Substance: OMEPRAZOLE
  35. RANITIDINE. [Concomitant]
     Active Substance: RANITIDINE
  36. METHYLPREDNISOLONE. [Concomitant]
     Active Substance: METHYLPREDNISOLONE

REACTIONS (9)
  - Osteoporosis [Not Recovered/Not Resolved]
  - Skeletal injury [Unknown]
  - Bone density decreased [Unknown]
  - Anxiety [Not Recovered/Not Resolved]
  - Muscle mass [Unknown]
  - Emotional distress [Not Recovered/Not Resolved]
  - Anhedonia [Not Recovered/Not Resolved]
  - Depression [Not Recovered/Not Resolved]
  - Pain [Not Recovered/Not Resolved]

NARRATIVE: CASE EVENT DATE: 2005
